FAERS Safety Report 15897124 (Version 2)
Quarter: 2019Q1

REPORT INFORMATION
  Report Type: Spontaneous
  Country: JP (occurrence: JP)
  Receive Date: 20190131
  Receipt Date: 20190206
  Transmission Date: 20190417
  Serious: Yes (Other)
  Sender: FDA-Public Use
  Company Number: JP-GLAXOSMITHKLINE-JP2019JPN008714

PATIENT
  Age: 18 Year
  Sex: Female

DRUGS (3)
  1. MAOTO [Concomitant]
     Active Substance: HERBALS
     Indication: INFLUENZA
     Dosage: 2.5 G, TID
     Dates: start: 20190110, end: 20190111
  2. RELENZA [Suspect]
     Active Substance: ZANAMIVIR
     Indication: INFLUENZA
     Dosage: 10 MG, BID
     Route: 055
     Dates: start: 20190110, end: 20190114
  3. CALONAL [Concomitant]
     Active Substance: ACETAMINOPHEN
     Indication: INFLUENZA
     Dosage: 500 MG, BID
     Dates: start: 20190110, end: 20190112

REACTIONS (3)
  - Abnormal behaviour [Recovered/Resolved]
  - Thermal burn [Recovered/Resolved]
  - Anger [Recovered/Resolved]

NARRATIVE: CASE EVENT DATE: 20190110
